FAERS Safety Report 24061583 (Version 2)
Quarter: 2024Q3

REPORT INFORMATION
  Report Type: Spontaneous
  Country: GB (occurrence: GB)
  Receive Date: 20240708
  Receipt Date: 20240726
  Transmission Date: 20241017
  Serious: Yes (Hospitalization, Other)
  Sender: MYLAN
  Company Number: GB-MYLANLABS-2024M1055894

PATIENT
  Sex: Female

DRUGS (1)
  1. CLOZARIL [Suspect]
     Active Substance: CLOZAPINE
     Indication: Schizophrenia
     Dosage: UNK
     Route: 048
     Dates: start: 20181029

REACTIONS (5)
  - Gastric infection [Unknown]
  - Appendiceal abscess [Unknown]
  - Neutrophilia [Unknown]
  - Leukocytosis [Unknown]
  - Product dose omission issue [Unknown]
